FAERS Safety Report 20965193 (Version 3)
Quarter: 2022Q3

REPORT INFORMATION
  Report Type: Spontaneous
  Country: US (occurrence: None)
  Receive Date: 20220616
  Receipt Date: 20220814
  Transmission Date: 20221026
  Serious: Yes (Other)
  Sender: FDA-Public Use
  Company Number: US-ROCHE-3118317

PATIENT
  Age: 44 Year
  Sex: Female
  Weight: 71.278 kg

DRUGS (3)
  1. OCREVUS [Suspect]
     Active Substance: OCRELIZUMAB
     Indication: Multiple sclerosis
     Dosage: FIRST HALF DOSE, SECOND HALF ON 10/JUN/2022
     Route: 042
     Dates: start: 20220513
  2. GABAPENTIN [Concomitant]
     Active Substance: GABAPENTIN
  3. PFIZER-BIONTECH COVID-19 VACCINE [Concomitant]
     Active Substance: TOZINAMERAN
     Dosage: 4 DOSES
     Dates: start: 20220422

REACTIONS (4)
  - Infusion site reaction [Unknown]
  - COVID-19 [Recovered/Resolved]
  - Fatigue [Unknown]
  - Nasal congestion [Unknown]

NARRATIVE: CASE EVENT DATE: 20220516
